FAERS Safety Report 16352144 (Version 2)
Quarter: 2019Q4

REPORT INFORMATION
  Report Type: Spontaneous
  Country: NL (occurrence: NL)
  Receive Date: 20190524
  Receipt Date: 20191230
  Transmission Date: 20200122
  Serious: Yes (Hospitalization, Other)
  Sender: FDA-Public Use
  Company Number: NL-AUROBINDO-AUR-APL-2019-028000

PATIENT
  Age: 6 Year
  Sex: Male

DRUGS (4)
  1. OMEPRAZOLE. [Suspect]
     Active Substance: OMEPRAZOLE
     Indication: GASTROOESOPHAGEAL REFLUX PROPHYLAXIS
     Dosage: UNK, TWO TIMES A DAY
     Route: 048
     Dates: start: 20171027
  2. CEFAZOLIN [Suspect]
     Active Substance: CEFAZOLIN
     Indication: ANTIBIOTIC PROPHYLAXIS
     Dosage: 40 MILLIGRAM, 3 TIMES A DAY
     Route: 042
     Dates: start: 20171101
  3. VANCOMYCIN [Suspect]
     Active Substance: VANCOMYCIN
     Indication: ANTIBIOTIC PROPHYLAXIS
     Dosage: 200 MILLIGRAM, DAILY
     Route: 042
     Dates: start: 20171101
  4. MEROPENEM. [Suspect]
     Active Substance: MEROPENEM
     Indication: ANTIBIOTIC PROPHYLAXIS
     Dosage: 400 MILLIGRAM
     Route: 042
     Dates: start: 20171101

REACTIONS (2)
  - Fungal infection [Recovering/Resolving]
  - Systemic candida [Recovering/Resolving]

NARRATIVE: CASE EVENT DATE: 20171101
